FAERS Safety Report 16249842 (Version 1)
Quarter: 2019Q2

REPORT INFORMATION
  Report Type: Spontaneous
  Country: US (occurrence: US)
  Receive Date: 20190325
  Receipt Date: 20190325
  Transmission Date: 20190711
  Serious: No
  Sender: FDA-Public Use
  Company Number: None

PATIENT
  Sex: Female

DRUGS (1)
  1. EPOPROSTENOL SOD 1.5MG/VL [Suspect]
     Active Substance: EPOPROSTENOL SODIUM
     Indication: PULMONARY ARTERIAL HYPERTENSION
     Dosage: ?          OTHER FREQUENCY:UNKNOWN;?
     Route: 041
     Dates: start: 20170711

REACTIONS (2)
  - Abdominal distension [None]
  - Dyspnoea [None]
